FAERS Safety Report 13573137 (Version 2)
Quarter: 2017Q2

REPORT INFORMATION
  Report Type: Spontaneous
  Country: US (occurrence: US)
  Receive Date: 20170523
  Receipt Date: 20170614
  Transmission Date: 20170830
  Serious: Yes (Life-Threatening, Other)
  Sender: FDA-Public Use
  Company Number: US-OTSUKA-2017_010731

PATIENT
  Sex: Female

DRUGS (1)
  1. NUEDEXTA [Suspect]
     Active Substance: DEXTROMETHORPHAN HYDROBROMIDE\QUINIDINE SULFATE
     Indication: AFFECT LABILITY
     Dosage: UNK
     Route: 065
     Dates: start: 201202, end: 201603

REACTIONS (12)
  - Condition aggravated [Unknown]
  - Depression [Unknown]
  - Depressed level of consciousness [Recovered/Resolved]
  - Amnesia [Unknown]
  - Somnolence [Unknown]
  - Agoraphobia [Recovered/Resolved]
  - Adverse drug reaction [Unknown]
  - Hallucination [Unknown]
  - Fear [Unknown]
  - Social problem [Unknown]
  - Post-traumatic stress disorder [Unknown]
  - Anxiety [Unknown]
